FAERS Safety Report 10204835 (Version 3)
Quarter: 2014Q2

REPORT INFORMATION
  Report Type: Spontaneous
  Country: BR (occurrence: BR)
  Receive Date: 20140529
  Receipt Date: 20140602
  Transmission Date: 20141212
  Serious: Yes (Other)
  Sender: FDA-Public Use
  Company Number: BR-PFIZER INC-2014137646

PATIENT
  Age: 72 Year
  Sex: Male

DRUGS (1)
  1. VIAGRA [Suspect]
     Dosage: 100 MG, WEEKLY
     Route: 048
     Dates: start: 201404

REACTIONS (4)
  - Haematospermia [Unknown]
  - Semen discolouration [Unknown]
  - Dizziness [Unknown]
  - Drug ineffective [Unknown]
